FAERS Safety Report 18333217 (Version 1)
Quarter: 2020Q4

REPORT INFORMATION
  Report Type: Report from Study
  Country: CN (occurrence: CN)
  Receive Date: 20201001
  Receipt Date: 20201001
  Transmission Date: 20210113
  Serious: Yes (Other)
  Sender: FDA-Public Use
  Company Number: CN-TEVA-2020-CN-1832846

PATIENT
  Age: 25 Year
  Sex: Male

DRUGS (9)
  1. MYCOPHENOLATE MOFETIL. [Suspect]
     Active Substance: MYCOPHENOLATE MOFETIL
     Indication: PROPHYLAXIS AGAINST GRAFT VERSUS HOST DISEASE
     Dosage: 1000 MILLIGRAM DAILY; ADMINISTERED SINCE 10 DAYS PRIOR TO TRANSPLANTATION
     Route: 065
  2. CYTARABINE. [Suspect]
     Active Substance: CYTARABINE
     Indication: IMMUNOSUPPRESSANT DRUG THERAPY
     Dosage: DOSE: 4 G/M2/DAY; ADMINISTERED 5-6 DAYS PRIOR TO TRANSPLANTATION
     Route: 065
  3. ANTITHYMOCYTE GLOBULIN [Suspect]
     Active Substance: THYMOCYTE IMMUNE GLOBULIN NOS
     Indication: IMMUNOSUPPRESSANT DRUG THERAPY
     Dosage: 1.5 MG/KG DAILY; ADMINISTERED 5 DAYS PRIOR TO TRANSPLANTATION
     Route: 065
  4. BUSULFAN. [Suspect]
     Active Substance: BUSULFAN
     Indication: IMMUNOSUPPRESSANT DRUG THERAPY
     Dosage: 3.2 MG/KG DAILY; ADMINISTERED 10-8 DAYS PRIOR TO TRANSPLANTATION
     Route: 065
  5. ANTITHYMOCYTE GLOBULIN [Suspect]
     Active Substance: THYMOCYTE IMMUNE GLOBULIN NOS
     Indication: IMMUNOSUPPRESSANT DRUG THERAPY
     Dosage: ADMINISTERED 3-4 DAYS PRIOR TO TRANSPLANTATION
     Route: 065
  6. ANTITHYMOCYTE GLOBULIN [Suspect]
     Active Substance: THYMOCYTE IMMUNE GLOBULIN NOS
     Indication: IMMUNOSUPPRESSANT DRUG THERAPY
     Dosage: ADMINISTERED 2 DAYS PRIOR TO TRANSPLANTATION
     Route: 065
  7. CYCLOSPORINE A [Suspect]
     Active Substance: CYCLOSPORINE
     Indication: PROPHYLAXIS AGAINST GRAFT VERSUS HOST DISEASE
     Dosage: 2 MG/KG DAILY; ADMINISTERED SINCE 10 DAYS PRIOR TO TRANSPLANTATION
     Route: 065
  8. CARMUSTINE. [Suspect]
     Active Substance: CARMUSTINE
     Indication: IMMUNOSUPPRESSANT DRUG THERAPY
     Dosage: 250 MILLIGRAM DAILY; ADMINISTERED 7 DAYS PRIOR TO TRANSPLANTATION
     Route: 065
  9. CYCLOPHOSPHAMIDE. [Suspect]
     Active Substance: CYCLOPHOSPHAMIDE
     Indication: IMMUNOSUPPRESSANT DRUG THERAPY
     Dosage: 50 MG/KG DAILY; ADMINISTERED 3-4 DAYS PRIOR TO TRANSPLANTATION
     Route: 065

REACTIONS (1)
  - Cystitis haemorrhagic [Recovering/Resolving]
